FAERS Safety Report 11114175 (Version 2)
Quarter: 2015Q2

REPORT INFORMATION
  Report Type: Spontaneous
  Country: FR (occurrence: FR)
  Receive Date: 20150514
  Receipt Date: 20150519
  Transmission Date: 20150821
  Serious: Yes (Other)
  Sender: FDA-Public Use
  Company Number: PHHY2015FR057049

PATIENT
  Age: 64 Year
  Sex: Male

DRUGS (5)
  1. NILOTINIB [Suspect]
     Active Substance: NILOTINIB
     Indication: CHRONIC MYELOID LEUKAEMIA
     Dosage: 800 MG, QD
     Route: 065
     Dates: start: 2008
  2. NILOTINIB [Suspect]
     Active Substance: NILOTINIB
     Dosage: 600 MG, QD
     Route: 065
  3. ATORVASTATIN [Suspect]
     Active Substance: ATORVASTATIN
     Indication: BLOOD CHOLESTEROL INCREASED
     Dosage: 20 MG, QD
     Route: 065
     Dates: start: 201210
  4. NILOTINIB [Suspect]
     Active Substance: NILOTINIB
     Dosage: 400 MG, QD
     Route: 065
     Dates: end: 201301
  5. ATORVASTATIN [Suspect]
     Active Substance: ATORVASTATIN
     Dosage: 30 MG, QD
     Route: 065
     Dates: end: 201304

REACTIONS (7)
  - Xanthoma [Unknown]
  - Peripheral artery stenosis [Not Recovered/Not Resolved]
  - Arterial disorder [Recovering/Resolving]
  - Myalgia [Unknown]
  - Peripheral arterial occlusive disease [Recovering/Resolving]
  - Intermittent claudication [Recovered/Resolved]
  - Vascular occlusion [Not Recovered/Not Resolved]

NARRATIVE: CASE EVENT DATE: 201109
